FAERS Safety Report 18799878 (Version 1)
Quarter: 2021Q1

REPORT INFORMATION
  Report Type: Spontaneous
  Country: US (occurrence: US)
  Receive Date: 20210128
  Receipt Date: 20210128
  Transmission Date: 20210419
  Serious: Yes (Life-Threatening, Hospitalization, Disabling, Other)
  Sender: FDA-Public Use
  Company Number: None

PATIENT
  Age: 68 Year
  Sex: Female

DRUGS (1)
  1. BAMLANIVIMAB. [Suspect]
     Active Substance: BAMLANIVIMAB
     Indication: SARS-COV-2 TEST POSITIVE
     Dosage: ?          QUANTITY:1 INFUSION;?
     Route: 058
     Dates: start: 20210114, end: 20210114

REACTIONS (5)
  - COVID-19 pneumonia [None]
  - Orthostatic hypotension [None]
  - Haemorrhage [None]
  - Colitis ischaemic [None]
  - Melaena [None]

NARRATIVE: CASE EVENT DATE: 20210115
